FAERS Safety Report 16983404 (Version 3)
Quarter: 2019Q4

REPORT INFORMATION
  Report Type: Spontaneous
  Country: BR (occurrence: BR)
  Receive Date: 20191101
  Receipt Date: 20191114
  Transmission Date: 20200122
  Serious: Yes (Hospitalization, Other)
  Sender: FDA-Public Use
  Company Number: BR-SA-2019SA298990

PATIENT
  Age: 18 Month
  Sex: Male

DRUGS (1)
  1. MYOZYME [Suspect]
     Active Substance: ALGLUCOSIDASE ALFA
     Indication: GLYCOGEN STORAGE DISEASE TYPE II
     Dosage: UNK UNK, Q15D
     Route: 041
     Dates: start: 2018

REACTIONS (2)
  - Mechanical ventilation [Unknown]
  - Hypotonia [Recovered/Resolved]
